FAERS Safety Report 19420907 (Version 1)
Quarter: 2021Q2

REPORT INFORMATION
  Report Type: Spontaneous
  Country: IN (occurrence: IN)
  Receive Date: 20210616
  Receipt Date: 20210616
  Transmission Date: 20210717
  Serious: Yes (Death, Other)
  Sender: FDA-Public Use
  Company Number: IN-UCBSA-2021028993

PATIENT
  Age: 21 Year
  Sex: Male

DRUGS (4)
  1. SODIUM VALPROATE [Concomitant]
     Active Substance: VALPROATE SODIUM
     Indication: SUBACUTE SCLEROSING PANENCEPHALITIS
     Dosage: 500 MILLIGRAM, 2X/DAY (BID)
  2. ISOPRINOSINE [Concomitant]
     Active Substance: INOSINE PRANOBEX
     Indication: SUBACUTE SCLEROSING PANENCEPHALITIS
     Dosage: 1000 MILLIGRAM, 3X/DAY (TID)
  3. KEPPRA [Suspect]
     Active Substance: LEVETIRACETAM
     Indication: SUBACUTE SCLEROSING PANENCEPHALITIS
     Dosage: 750 MILLIGRAM, 2X/DAY (BID)
  4. CLONAZEPAM. [Concomitant]
     Active Substance: CLONAZEPAM
     Indication: SUBACUTE SCLEROSING PANENCEPHALITIS
     Dosage: 0.25 MILLIGRAM, 2X/DAY (BID)

REACTIONS (3)
  - Pneumonia aspiration [Fatal]
  - Subacute sclerosing panencephalitis [Unknown]
  - Product use in unapproved indication [Unknown]
